FAERS Safety Report 5924513-6 (Version None)
Quarter: 2008Q4

REPORT INFORMATION
  Report Type: 
  Country: None (occurrence: None)
  Receive Date: 20081020
  Receipt Date: 20081010
  Transmission Date: 20090506
  Serious: Yes (Hospitalization, Other)
  Sender: FDA-Public Use
  Company Number: AR-PFIZER INC-2008084307

PATIENT
  Age: 56 Year
  Sex: Male

DRUGS (3)
  1. ATORVASTATIN CALCIUM [Suspect]
     Dates: start: 20080101
  2. ENALAPRIL MALEATE [Suspect]
  3. DECIDEX [Suspect]
     Indication: NASAL CONGESTION
     Dosage: TEXT:TDD:1-2TABLET
     Route: 048
     Dates: start: 20080901

REACTIONS (1)
  - ACUTE MYOCARDIAL INFARCTION [None]
